FAERS Safety Report 9149109 (Version 1)
Quarter: 2013Q1

REPORT INFORMATION
  Report Type: Spontaneous
  Country: BR (occurrence: BR)
  Receive Date: 20130308
  Receipt Date: 20130308
  Transmission Date: 20140127
  Serious: Yes (Hospitalization)
  Sender: FDA-Public Use
  Company Number: BR-PFIZER INC-2013078656

PATIENT
  Age: 83 Year
  Sex: Female
  Weight: 83 kg

DRUGS (1)
  1. LYRICA [Suspect]
     Indication: PAIN
     Dosage: 1 CAPSULE OF 75 MG, 2X/DAY
     Route: 048
     Dates: start: 201211

REACTIONS (1)
  - Spinal disorder [Unknown]
